FAERS Safety Report 8903304 (Version 1)
Quarter: 2012Q4

REPORT INFORMATION
  Report Type: 
  Country: DE (occurrence: DE)
  Receive Date: 20121112
  Receipt Date: 20121112
  Transmission Date: 20130627
  Serious: Yes (Other)
  Sender: FDA-Public Use
  Company Number: DE-ASTRAZENECA-2012SE82631

PATIENT
  Sex: Female
  Weight: 50 kg

DRUGS (2)
  1. FASLODEX [Suspect]
     Indication: BREAST CANCER METASTATIC
     Dosage: 500 MG TWO WEEKS AFTER START OF THE THERAPY AND FURTHER DOSES EVERY FOUR WEEKS
     Route: 030
     Dates: start: 20120618
  2. XGEVA [Concomitant]

REACTIONS (1)
  - Thrombocytopenia [Not Recovered/Not Resolved]
